FAERS Safety Report 5188328-1 (Version None)
Quarter: 2006Q4

REPORT INFORMATION
  Report Type: 
  Country: None (occurrence: None)
  Receive Date: 20061221
  Receipt Date: 20040217
  Transmission Date: 20070319
  Serious: Yes (Other)
  Sender: FDA-Public Use
  Company Number: US-ELI_LILLY_AND_COMPANY-USA040259514

PATIENT
  Age: 71 Year
  Sex: Female
  Weight: 56.818 kg

DRUGS (10)
  1. FORTEO [Suspect]
     Indication: BONE DENSITY DECREASED
     Dates: start: 20061011
  2. FORTEO [Suspect]
     Dosage: 20 UG, DAILY (1/D)
     Dates: start: 20040210, end: 20040401
  3. CARDURA [Concomitant]
     Indication: HYPERTENSION
     Dosage: UNK, UNKNOWN
  4. CARDIZEM [Concomitant]
     Indication: HYPERTENSION
     Dosage: UNK, UNKNOWN
  5. NEURONTIN [Concomitant]
     Indication: CONVULSION
     Dosage: UNK, UNKNOWN
  6. ZYRTEC [Concomitant]
     Indication: MULTIPLE ALLERGIES
     Dosage: UNK, UNKNOWN
  7. FOSAMAX [Concomitant]
     Indication: BONE DENSITY DECREASED
     Dosage: UNK, UNKNOWN
     Dates: start: 20000101, end: 20040201
  8. ASPIRIN [Concomitant]
     Indication: HEART RATE IRREGULAR
     Dosage: UNK, UNKNOWN
  9. LANOXIN [Concomitant]
     Indication: HEART RATE IRREGULAR
     Dosage: UNK, UNKNOWN
  10. CELEBREX [Concomitant]
     Dosage: UNK, UNKNOWN

REACTIONS (6)
  - AURA [None]
  - BLOOD PRESSURE DECREASED [None]
  - CONVULSION [None]
  - INJECTION SITE BRUISING [None]
  - INJECTION SITE HAEMORRHAGE [None]
  - PHARMACEUTICAL PRODUCT COMPLAINT [None]
